FAERS Safety Report 9913478 (Version 2)
Quarter: 2014Q1

REPORT INFORMATION
  Report Type: Spontaneous
  Country: JP (occurrence: JP)
  Receive Date: 20140220
  Receipt Date: 20140305
  Transmission Date: 20141002
  Serious: Yes (Other)
  Sender: FDA-Public Use
  Company Number: JP-ABBVIE-14P-087-1204116-00

PATIENT
  Age: 15 Year
  Sex: Male

DRUGS (3)
  1. CLARITH [Suspect]
     Indication: CAMPYLOBACTER GASTROENTERITIS
     Route: 048
  2. CEFTRIAXONE [Suspect]
     Indication: LEPTOSPIROSIS
     Route: 041
  3. CEFTRIAXONE [Suspect]
     Indication: GASTROENTERITIS SALMONELLA

REACTIONS (1)
  - Jarisch-Herxheimer reaction [Unknown]
